FAERS Safety Report 6984549-3 (Version None)
Quarter: 2010Q3

REPORT INFORMATION
  Report Type: 
  Country: None (occurrence: None)
  Receive Date: 20100915
  Receipt Date: 20100907
  Transmission Date: 20110219
  Serious: Yes (Other)
  Sender: FDA-Public Use
  Company Number: BR-PFIZER INC-2009296081

PATIENT
  Age: 42 Year
  Sex: Male

DRUGS (1)
  1. LIPITOR [Suspect]
     Indication: INFARCTION
     Dosage: UNK
     Route: 048
     Dates: start: 20081001

REACTIONS (3)
  - HIGH DENSITY LIPOPROTEIN DECREASED [None]
  - LOW DENSITY LIPOPROTEIN DECREASED [None]
  - MYALGIA [None]
